FAERS Safety Report 7821079-0 (Version None)
Quarter: 2011Q4

REPORT INFORMATION
  Report Type: 
  Country: None (occurrence: None)
  Receive Date: 20111018
  Receipt Date: 20111015
  Transmission Date: 20120403
  Serious: No
  Sender: FDA-Public Use
  Company Number: US-PFIZER INC-2011247038

PATIENT
  Sex: Female
  Weight: 54.422 kg

DRUGS (7)
  1. ALENDRONATE SODIUM [Concomitant]
     Dosage: 70 MG, WEEKLY
  2. LISINOPRIL [Concomitant]
     Dosage: UNK
  3. TIKOSYN [Suspect]
     Indication: ATRIAL FIBRILLATION
     Dosage: 0.125 MG, 2X/DAY
     Route: 048
     Dates: start: 20110901
  4. LEVOXYL [Concomitant]
     Indication: HYPOTHYROIDISM
     Dosage: UNK
  5. ATENOLOL [Concomitant]
     Dosage: UNK
  6. SIMVASTATIN [Concomitant]
     Dosage: UNK
  7. WARFARIN [Concomitant]
     Dosage: UNK

REACTIONS (1)
  - HEADACHE [None]
